FAERS Safety Report 16454492 (Version 2)
Quarter: 2019Q2

REPORT INFORMATION
  Report Type: Spontaneous
  Country: US (occurrence: US)
  Receive Date: 20190620
  Receipt Date: 20190627
  Transmission Date: 20190711
  Serious: Yes (Other)
  Sender: FDA-Public Use
  Company Number: US-DRREDDYS-USA/USA/19/0111044

PATIENT
  Age: 74 Year
  Sex: Male
  Weight: 87.27 kg

DRUGS (1)
  1. CIPROFLOXACIN. [Suspect]
     Active Substance: CIPROFLOXACIN
     Indication: DIVERTICULITIS
     Route: 048
     Dates: start: 20190528, end: 20190605

REACTIONS (5)
  - Pruritus [Recovering/Resolving]
  - Paraesthesia [Not Recovered/Not Resolved]
  - Dysphonia [Unknown]
  - Hypoaesthesia [Recovering/Resolving]
  - Neuropathy peripheral [Not Recovered/Not Resolved]

NARRATIVE: CASE EVENT DATE: 20190605
